FAERS Safety Report 6760238-5 (Version None)
Quarter: 2010Q2

REPORT INFORMATION
  Report Type: 
  Country: None (occurrence: None)
  Receive Date: 20100608
  Receipt Date: 20010402
  Transmission Date: 20101027
  Serious: No
  Sender: FDA-Public Use
  Company Number: 2001SUS0302

PATIENT
  Age: 37 Year
  Sex: Female

DRUGS (10)
  1. SUSTIVA [Suspect]
     Indication: HIV INFECTION
     Dosage: 600 MG AES#DOSE_FREQUENCY: DLY
     Route: 048
     Dates: start: 19991101, end: 20000501
  2. LAMIVUDINE + ZIDOVUDINE [Suspect]
     Indication: HIV INFECTION
     Dosage: 2 DLY
     Route: 048
     Dates: start: 19991101
  3. NEVIRAPINE [Suspect]
     Indication: HIV INFECTION
     Dosage: 200-400 MG DLY
     Route: 048
     Dates: start: 20000511
  4. BENADRYL [Concomitant]
  5. CLARITIN [Concomitant]
  6. DAPSONE [Concomitant]
  7. METOPROLOL TARTRATE [Concomitant]
  8. PAXIL [Concomitant]
  9. PRENATAL VITAMINS [Concomitant]
  10. THORAZINE [Concomitant]

REACTIONS (2)
  - NORMAL NEWBORN [None]
  - PREGNANCY [None]
